FAERS Safety Report 9636223 (Version 1)
Quarter: 2013Q4

REPORT INFORMATION
  Report Type: Spontaneous
  Country: IT (occurrence: IT)
  Receive Date: 20131021
  Receipt Date: 20131021
  Transmission Date: 20140711
  Serious: Yes (Hospitalization)
  Sender: FDA-Public Use
  Company Number: IT-BRISTOL-MYERS SQUIBB COMPANY-19540335

PATIENT
  Age: 93 Year
  Sex: Female

DRUGS (1)
  1. COUMADIN TABS 5 MG [Suspect]
     Indication: PULMONARY EMBOLISM
     Route: 048
     Dates: start: 20080327, end: 20130817

REACTIONS (5)
  - Melaena [Recovered/Resolved]
  - Oesophageal ulcer [Recovered/Resolved]
  - Erosive duodenitis [Recovered/Resolved]
  - Anaemia [Recovered/Resolved]
  - Asthenia [Recovered/Resolved]
